FAERS Safety Report 13561278 (Version 1)
Quarter: 2017Q2

REPORT INFORMATION
  Report Type: Report from Study
  Country: AU (occurrence: AU)
  Receive Date: 20170518
  Receipt Date: 20170518
  Transmission Date: 20170830
  Serious: Yes (Hospitalization)
  Sender: FDA-Public Use
  Company Number: PHHY2017AU071815

PATIENT
  Sex: Male

DRUGS (1)
  1. COSENTYX [Suspect]
     Active Substance: SECUKINUMAB
     Indication: PSORIATIC ARTHROPATHY
     Dosage: 300 MG, QMO
     Route: 058
     Dates: start: 20170323

REACTIONS (8)
  - Oropharyngeal pain [Unknown]
  - Nausea [Unknown]
  - Ear pain [Unknown]
  - Psoriasis [Unknown]
  - Pyrexia [Unknown]
  - Dyspnoea [Unknown]
  - Mouth ulceration [Unknown]
  - Feeling abnormal [Unknown]
